FAERS Safety Report 18080035 (Version 2)
Quarter: 2021Q3

REPORT INFORMATION
  Report Type: Spontaneous
  Country: US (occurrence: US)
  Receive Date: 20200728
  Receipt Date: 20210820
  Transmission Date: 20211014
  Serious: Yes (Death, Other)
  Sender: FDA-Public Use
  Company Number: US-GILEAD-2020-0485417

PATIENT
  Age: 34 Year
  Sex: Female

DRUGS (1)
  1. TRUVADA [Suspect]
     Active Substance: EMTRICITABINE\TENOFOVIR DISOPROXIL FUMARATE
     Indication: ACQUIRED IMMUNODEFICIENCY SYNDROME
     Route: 048

REACTIONS (5)
  - Multiple fractures [Unknown]
  - Bone density decreased [Unknown]
  - Chronic kidney disease [Unknown]
  - Death [Fatal]
  - Underweight [Unknown]

NARRATIVE: CASE EVENT DATE: 20061026
